FAERS Safety Report 16655302 (Version 1)
Quarter: 2019Q3

REPORT INFORMATION
  Report Type: Spontaneous
  Country: ES (occurrence: ES)
  Receive Date: 20190801
  Receipt Date: 20190801
  Transmission Date: 20191004
  Serious: Yes (Life-Threatening, Hospitalization)
  Sender: FDA-Public Use
  Company Number: ES-TEVA-2019-ES-1086229

PATIENT
  Age: 49 Year
  Sex: Female
  Weight: 100 kg

DRUGS (4)
  1. SECUKINUMAB (9123A) [Interacting]
     Active Substance: SECUKINUMAB
     Indication: AXIAL SPONDYLOARTHRITIS
     Route: 058
     Dates: start: 20190508, end: 20190513
  2. LEFLUNOMIDA (7414A) [Suspect]
     Active Substance: LEFLUNOMIDE
     Indication: AXIAL SPONDYLOARTHRITIS
     Dosage: 10 MILLIGRAM DAILY;
     Route: 048
     Dates: start: 20190207, end: 20190513
  3. SOLIFENACINA (2919A) [Concomitant]
     Dates: start: 201902, end: 201904
  4. SIMPONI 50 MG SOLUCION INYECTABLE EN PLUMA PRECARGADA [Concomitant]
     Route: 058
     Dates: start: 2017

REACTIONS (3)
  - Accelerated hypertension [Recovered/Resolved with Sequelae]
  - Drug interaction [Unknown]
  - Cerebral haemorrhage [Not Recovered/Not Resolved]

NARRATIVE: CASE EVENT DATE: 20190513
